FAERS Safety Report 11996176 (Version 1)
Quarter: 2016Q1

REPORT INFORMATION
  Report Type: Spontaneous
  Country: US (occurrence: US)
  Receive Date: 20160203
  Receipt Date: 20160203
  Transmission Date: 20160526
  Serious: No
  Sender: FDA-Public Use
  Company Number: US-GALDERMA-US15004560

PATIENT
  Age: 32 Year
  Sex: Female

DRUGS (2)
  1. EPIDUO [Suspect]
     Active Substance: ADAPALENE\BENZOYL PEROXIDE
     Indication: ACNE
     Route: 061
     Dates: start: 20150424, end: 201505
  2. BACTRIM (SULFAMETHOXAZOLE AND TRIMETHOPRIM) [Concomitant]
     Indication: ACNE
     Route: 048
     Dates: start: 20150424, end: 201505

REACTIONS (4)
  - Acne [Not Recovered/Not Resolved]
  - Scar [Not Recovered/Not Resolved]
  - Acne cystic [Not Recovered/Not Resolved]
  - Drug ineffective [Not Recovered/Not Resolved]

NARRATIVE: CASE EVENT DATE: 20150425
